FAERS Safety Report 7245008-6 (Version None)
Quarter: 2011Q1

REPORT INFORMATION
  Report Type: 
  Country: None (occurrence: None)
  Receive Date: 20110118
  Receipt Date: 20110107
  Transmission Date: 20110831
  Serious: Yes (Death, Other)
  Sender: FDA-Public Use
  Company Number: 2007-03556

PATIENT
  Age: 72 Year
  Sex: Male
  Weight: 61 kg

DRUGS (16)
  1. COTRIM [Concomitant]
  2. PANTOSIN (PANTETHINE) [Concomitant]
  3. MAGNESIUM OXIDE (MAGNESIUM OXIDE) [Concomitant]
  4. MAXIPIME [Concomitant]
  5. PURSENNID (SENNA LEAF) TABLET [Concomitant]
  6. ZOVIRAX [Concomitant]
  7. KYTRIL [Concomitant]
  8. HYDROCORTISONE SODIUM SUCCINATE [Concomitant]
  9. TAKEPRON (LANSOPRAZOLE) [Concomitant]
  10. ITRACONAZOLE [Concomitant]
  11. DEXAMETHASONE SODIUM PHOSPHATE [Concomitant]
  12. ZEFFIX (LAMIVUDINIE) [Concomitant]
  13. DIFLUCAN [Concomitant]
  14. VELCADE [Suspect]
     Indication: MULTIPLE MYELOMA
     Dosage: 1.60 MG, INTRAVENOUS
     Route: 042
     Dates: start: 20070522, end: 20070911
  15. ALENDRONATE SODIUM [Concomitant]
  16. WARFARIN POTASSIUM (WARFARIN POTASSIUM) [Concomitant]

REACTIONS (8)
  - NEOPLASM MALIGNANT [None]
  - PLATELET COUNT DECREASED [None]
  - PYREXIA [None]
  - ASTHMA [None]
  - NEUROPATHY PERIPHERAL [None]
  - HERPES ZOSTER [None]
  - MULTIPLE MYELOMA [None]
  - LYMPHOCYTE COUNT DECREASED [None]
